FAERS Safety Report 12611450 (Version 1)
Quarter: 2016Q3

REPORT INFORMATION
  Report Type: Spontaneous
  Country: IT (occurrence: IT)
  Receive Date: 20160801
  Receipt Date: 20160801
  Transmission Date: 20161109
  Serious: Yes (Hospitalization)
  Sender: FDA-Public Use
  Company Number: IT-PFIZER INC-2016364112

PATIENT
  Age: 24 Year
  Sex: Female

DRUGS (5)
  1. ARSENIC TRIOXIDE [Suspect]
     Active Substance: ARSENIC TRIOXIDE
     Dosage: 0.15 MG/KG, DAILY
  2. ALTEPLASE [Suspect]
     Active Substance: ALTEPLASE
     Dosage: 100 MG, UNK
  3. ATRA [Suspect]
     Active Substance: TRETINOIN
     Indication: ACUTE PROMYELOCYTIC LEUKAEMIA
     Dosage: 45MG/M2 PER DAY IN TWO DIVIDED
     Route: 048
  4. METHYLPREDNISOLONE. [Suspect]
     Active Substance: METHYLPREDNISOLONE
     Indication: PROPHYLAXIS
     Dosage: 0.5 MG/KG, UNK
  5. HEPARIN SODIUM. [Suspect]
     Active Substance: HEPARIN SODIUM
     Dosage: UNK
     Route: 042

REACTIONS (8)
  - Troponin increased [Recovered/Resolved]
  - Leukocytosis [Recovered/Resolved]
  - Electrocardiogram T wave abnormal [Recovered/Resolved]
  - Tachypnoea [Recovered/Resolved]
  - Asthenia [Recovered/Resolved]
  - Hypoxia [Recovered/Resolved]
  - Hypotension [Recovered/Resolved]
  - Chest pain [Recovered/Resolved]
